FAERS Safety Report 21528907 (Version 1)
Quarter: 2022Q4

REPORT INFORMATION
  Report Type: Report from Study
  Country: DE (occurrence: DE)
  Receive Date: 20221031
  Receipt Date: 20221031
  Transmission Date: 20230113
  Serious: Yes (Other)
  Sender: FDA-Public Use
  Company Number: DE-MYLANLABS-2022M1118766

PATIENT
  Age: 67 Year
  Sex: Male

DRUGS (14)
  1. FLUOROURACIL [Suspect]
     Active Substance: FLUOROURACIL
     Indication: Gastric cancer
     Dosage: UNK UNK, CYCLE
     Route: 065
  2. FLUOROURACIL [Suspect]
     Active Substance: FLUOROURACIL
     Indication: Epstein-Barr virus infection
  3. LEUCOVORIN [Suspect]
     Active Substance: LEUCOVORIN
     Indication: Gastric cancer
     Dosage: UNK UNK, CYCLE
     Route: 065
  4. LEUCOVORIN [Suspect]
     Active Substance: LEUCOVORIN
     Indication: Epstein-Barr virus infection
  5. OXALIPLATIN [Suspect]
     Active Substance: OXALIPLATIN
     Indication: Gastric cancer
     Dosage: UNK UNK, CYCLE
     Route: 065
  6. OXALIPLATIN [Suspect]
     Active Substance: OXALIPLATIN
     Indication: Epstein-Barr virus infection
  7. PACLITAXEL [Suspect]
     Active Substance: PACLITAXEL
     Indication: Gastric cancer
     Dosage: UNK UNK, CYCLE
     Route: 065
  8. PACLITAXEL [Suspect]
     Active Substance: PACLITAXEL
     Indication: Epstein-Barr virus infection
  9. RAMUCIRUMAB [Suspect]
     Active Substance: RAMUCIRUMAB
     Indication: Gastric cancer
     Dosage: UNK UNK, CYCLE
     Route: 065
  10. RAMUCIRUMAB [Suspect]
     Active Substance: RAMUCIRUMAB
     Indication: Epstein-Barr virus infection
  11. LONSURF [Suspect]
     Active Substance: TIPIRACIL HYDROCHLORIDE\TRIFLURIDINE
     Indication: Gastric cancer
     Dosage: UNK UNK, CYCLE
     Route: 065
  12. LONSURF [Suspect]
     Active Substance: TIPIRACIL HYDROCHLORIDE\TRIFLURIDINE
     Indication: Epstein-Barr virus infection
  13. PEMBROLIZUMAB [Concomitant]
     Active Substance: PEMBROLIZUMAB
     Indication: Gastric cancer
     Dosage: 200 MILLIGRAM, Q3W
     Route: 065
  14. PEMBROLIZUMAB [Concomitant]
     Active Substance: PEMBROLIZUMAB
     Indication: Epstein-Barr virus infection

REACTIONS (2)
  - Drug ineffective [Unknown]
  - Disease progression [Unknown]
